FAERS Safety Report 5953583-4 (Version None)
Quarter: 2008Q4

REPORT INFORMATION
  Report Type: 
  Country: None (occurrence: None)
  Receive Date: 20081114
  Receipt Date: 20081106
  Transmission Date: 20090506
  Serious: Yes (Other)
  Sender: FDA-Public Use
  Company Number: A0751189C

PATIENT
  Age: 60 Year
  Sex: Male
  Weight: 91 kg

DRUGS (3)
  1. LAPATINIB [Suspect]
     Dosage: 1500MG PER DAY
     Route: 048
     Dates: start: 20080911
  2. CISPLATIN [Suspect]
     Dosage: 100MGM2 CYCLIC
     Route: 042
     Dates: start: 20080916
  3. RADIATION [Suspect]
     Dosage: 1.77GY PER DAY
     Route: 061
     Dates: start: 20080915

REACTIONS (1)
  - LYMPHOPENIA [None]
